FAERS Safety Report 25723948 (Version 2)
Quarter: 2025Q3

REPORT INFORMATION
  Report Type: Spontaneous
  Country: RU (occurrence: RU)
  Receive Date: 20250825
  Receipt Date: 20250902
  Transmission Date: 20251021
  Serious: Yes (Other)
  Sender: Haleon PLC
  Company Number: RU-KENVUE-20250805670

PATIENT

DRUGS (1)
  1. NICORETTE MINT [Suspect]
     Active Substance: NICOTINE
     Indication: Product used for unknown indication
     Route: 048

REACTIONS (2)
  - Asphyxia [Unknown]
  - Product taste abnormal [Unknown]
